FAERS Safety Report 11782776 (Version 1)
Quarter: 2015Q4

REPORT INFORMATION
  Report Type: Spontaneous
  Country: US (occurrence: US)
  Receive Date: 20151127
  Receipt Date: 20151127
  Transmission Date: 20160305
  Serious: No
  Sender: FDA-Public Use
  Company Number: US-PFIZER INC-2014132463

PATIENT
  Age: 4 Year
  Sex: Female

DRUGS (1)
  1. GENOTROPIN [Suspect]
     Active Substance: SOMATROPIN
     Indication: HYPERTHYROIDISM
     Dosage: 0.6 MG, DAILY

REACTIONS (3)
  - Product use issue [Unknown]
  - Mental disorder [Unknown]
  - Anger [Unknown]

NARRATIVE: CASE EVENT DATE: 2012
